FAERS Safety Report 8854992 (Version 1)
Quarter: 2012Q4

REPORT INFORMATION
  Report Type: Report from Study
  Country: JP (occurrence: JP)
  Receive Date: 20121023
  Receipt Date: 20121023
  Transmission Date: 20130627
  Serious: Yes (Other)
  Sender: FDA-Public Use
  Company Number: JP-ASTELLAS-2012JP009869

PATIENT
  Age: 84 Year
  Sex: Male

DRUGS (3)
  1. MIRABEGRON [Suspect]
     Indication: HYPERTONIC BLADDER
     Dosage: 50 mg, UID/QD
     Route: 048
     Dates: start: 20120719, end: 20120722
  2. DETRUSITOL [Concomitant]
     Indication: HYPERTONIC BLADDER
     Dosage: 2 mg, Unknown/D
     Route: 048
     Dates: end: 20120718
  3. HARNAL [Concomitant]
     Indication: PROPHYLAXIS
     Dosage: 0.2 mg, Unknown/D
     Route: 048

REACTIONS (1)
  - Altered state of consciousness [Recovering/Resolving]
